FAERS Safety Report 8553553-6 (Version None)
Quarter: 2012Q3

REPORT INFORMATION
  Report Type: 
  Country: None (occurrence: None)
  Receive Date: 20120731
  Receipt Date: 20120727
  Transmission Date: 20120928
  Serious: Yes (Other)
  Sender: FDA-Public Use
  Company Number: US-PFIZER INC-2012051380

PATIENT
  Sex: Female

DRUGS (2)
  1. ESTRADIOL [Concomitant]
     Indication: HYSTERECTOMY
     Dosage: UNK
     Dates: start: 19940101
  2. CHANTIX [Suspect]
     Indication: SMOKING CESSATION THERAPY
     Dosage: UNK
     Dates: start: 20090501, end: 20090601

REACTIONS (2)
  - DEPRESSION [None]
  - SUICIDE ATTEMPT [None]
